FAERS Safety Report 5755577-0 (Version None)
Quarter: 2008Q2

REPORT INFORMATION
  Report Type: 
  Country: None (occurrence: None)
  Receive Date: 20080602
  Receipt Date: 20080519
  Transmission Date: 20081010
  Serious: Yes (Hospitalization)
  Sender: FDA-Public Use
  Company Number: PH-MERCK-0805PHL00013

PATIENT
  Age: 75 Year
  Sex: Female

DRUGS (2)
  1. FOSAMAX PLUS D [Suspect]
     Indication: ARTHRALGIA
     Route: 048
     Dates: start: 20080501, end: 20080501
  2. FOSAMAX PLUS D [Suspect]
     Indication: OSTEOPOROSIS
     Route: 048
     Dates: start: 20080501, end: 20080501

REACTIONS (1)
  - GASTROINTESTINAL PAIN [None]
